FAERS Safety Report 19179807 (Version 4)
Quarter: 2022Q2

REPORT INFORMATION
  Report Type: Report from Study
  Country: US (occurrence: US)
  Receive Date: 20210426
  Receipt Date: 20220606
  Transmission Date: 20220721
  Serious: Yes (Other)
  Sender: FDA-Public Use
  Company Number: US-TAKEDA-2021TUS024377

PATIENT
  Age: 72 Year
  Sex: Female
  Weight: 78.912 kg

DRUGS (18)
  1. .ALPHA.1-PROTEINASE INHIBITOR HUMAN [Suspect]
     Active Substance: .ALPHA.1-PROTEINASE INHIBITOR HUMAN
     Indication: Alpha-1 antitrypsin deficiency
     Dosage: 4480 MILLIGRAM, 1/WEEK
     Route: 042
     Dates: start: 20170211
  2. .ALPHA.1-PROTEINASE INHIBITOR HUMAN [Suspect]
     Active Substance: .ALPHA.1-PROTEINASE INHIBITOR HUMAN
     Indication: Alpha-1 antitrypsin deficiency
     Dosage: 4480 MILLIGRAM, 1/WEEK
     Route: 042
     Dates: start: 20170211
  3. .ALPHA.1-PROTEINASE INHIBITOR HUMAN [Suspect]
     Active Substance: .ALPHA.1-PROTEINASE INHIBITOR HUMAN
     Dosage: 60 MILLIGRAM/KILOGRAM, 1/WEEK
     Route: 042
     Dates: start: 20170211
  4. .ALPHA.1-PROTEINASE INHIBITOR HUMAN [Suspect]
     Active Substance: .ALPHA.1-PROTEINASE INHIBITOR HUMAN
     Dosage: 60 MILLIGRAM/KILOGRAM, 1/WEEK
     Route: 042
     Dates: start: 20170211
  5. DIPHENHYDRAMINE [Concomitant]
     Active Substance: DIPHENHYDRAMINE
  6. HEPARIN [Concomitant]
     Active Substance: HEPARIN SODIUM
  7. LIDOCAINE [Concomitant]
     Active Substance: LIDOCAINE
  8. SODIUM CHLORIDE [Concomitant]
     Active Substance: SODIUM CHLORIDE
  9. EPINEPHRINE [Concomitant]
     Active Substance: EPINEPHRINE
  10. ANORO ELLIPTA [Concomitant]
     Active Substance: UMECLIDINIUM BROMIDE\VILANTEROL TRIFENATATE
  11. PROAIR HFA [Concomitant]
     Active Substance: ALBUTEROL SULFATE
  12. XANAX [Concomitant]
     Active Substance: ALPRAZOLAM
  13. LISINOPRIL [Concomitant]
     Active Substance: LISINOPRIL
  14. IBUPROFEN [Concomitant]
     Active Substance: IBUPROFEN
  15. VITAMIN B COMPLEX [Concomitant]
     Active Substance: CYANOCOBALAMIN\DEXPANTHENOL\NIACINAMIDE\PYRIDOXINE HYDROCHLORIDE\RIBOFLAVIN 5^-PHOSPHATE SODIUM\THIA
  16. ASPIRIN [Concomitant]
     Active Substance: ASPIRIN
  17. LIDOCAINE\PRILOCAINE [Concomitant]
     Active Substance: LIDOCAINE\PRILOCAINE
  18. LISINOPRIL AND HYDROCHLOROTHIAZIDE [Concomitant]
     Active Substance: HYDROCHLOROTHIAZIDE\LISINOPRIL

REACTIONS (5)
  - Femoral neck fracture [Unknown]
  - Fall [Unknown]
  - Dermatitis contact [Unknown]
  - Seasonal allergy [Unknown]
  - Fatigue [Unknown]

NARRATIVE: CASE EVENT DATE: 20210328
